FAERS Safety Report 5220969-5 (Version None)
Quarter: 2007Q1

REPORT INFORMATION
  Report Type: 
  Country: None (occurrence: None)
  Receive Date: 20070123
  Receipt Date: 20070110
  Transmission Date: 20070707
  Serious: Yes (Hospitalization)
  Sender: FDA-Public Use
  Company Number: 2007RR-05273

PATIENT
  Age: 81 Year
  Sex: Male

DRUGS (9)
  1. FRUSEMIDE(FUROSEMIDE) UNKNOWN [Suspect]
     Indication: CARDIAC FAILURE
     Dosage: 40 MG, BID, ORAL
     Route: 048
  2. LISINOPRIL [Suspect]
     Indication: HYPERTENSION
     Dosage: 20 MG, QD, ORAL
     Route: 048
  3. AMIODARONE HCL [Concomitant]
  4. BISACODYL CORE (BISACODYL) [Concomitant]
  5. SPIRONLACTONE (SPIRONOLACTONE) UNKNOWN [Suspect]
     Indication: CARDIAC FAILURE
     Dosage: 25 MG,QD, ORAL
     Route: 048
     Dates: end: 20061221
  6. AMIODARONE HCL [Concomitant]
  7. BISACODYL CORE (BISACODYL) [Concomitant]
  8. BISOPROLOL FUMARATE [Concomitant]
  9. CODEINE PHOSPHATE (CODEINE PHOSPHATE) [Concomitant]

REACTIONS (1)
  - RENAL FAILURE ACUTE [None]
